FAERS Safety Report 9504156 (Version 3)
Quarter: 2013Q3

REPORT INFORMATION
  Report Type: Spontaneous
  Country: US (occurrence: US)
  Receive Date: 20130906
  Receipt Date: 20130919
  Transmission Date: 20140515
  Serious: Yes (Other)
  Sender: FDA-Public Use
  Company Number: US-TEVA-430158USA

PATIENT
  Age: 29 Year
  Sex: Female
  Weight: 112.14 kg

DRUGS (11)
  1. PARAGARD 380A [Suspect]
     Indication: CONTRACEPTION
     Route: 015
     Dates: start: 20130730, end: 20130830
  2. PROZAC [Concomitant]
     Indication: DEPRESSION
  3. WELLBUTRIN [Concomitant]
     Indication: DEPRESSION
  4. WELLBUTRIN [Concomitant]
     Indication: ANXIETY
  5. CRESTOR [Concomitant]
     Indication: BLOOD CHOLESTEROL INCREASED
  6. CLARITIN D [Concomitant]
     Indication: HYPERSENSITIVITY
  7. FISH OIL [Concomitant]
     Indication: BLOOD CHOLESTEROL INCREASED
  8. IRON [Concomitant]
  9. GABAPENTIN [Concomitant]
     Indication: BACK PAIN
  10. IBUPROFEN [Concomitant]
     Indication: BACK PAIN
  11. GENERESS FE [Concomitant]
     Indication: CONTRACEPTION

REACTIONS (5)
  - Device dislocation [Recovered/Resolved]
  - Device expulsion [Recovered/Resolved]
  - Ovarian cyst [Unknown]
  - Metrorrhagia [Not Recovered/Not Resolved]
  - Pelvic pain [Recovering/Resolving]
